FAERS Safety Report 9785078 (Version 2)
Quarter: 2014Q1

REPORT INFORMATION
  Report Type: Spontaneous
  Country: US (occurrence: US)
  Receive Date: 20131227
  Receipt Date: 20140314
  Transmission Date: 20141002
  Serious: Yes (Hospitalization)
  Sender: FDA-Public Use
  Company Number: US-CELGENEUS-163-21880-13123553

PATIENT
  Age: 57 Year
  Sex: Male
  Weight: 117.6 kg

DRUGS (5)
  1. REVLIMID [Suspect]
     Indication: PLASMA CELL MYELOMA
     Route: 048
     Dates: start: 20131115
  2. SAR650984 [Suspect]
     Indication: PLASMA CELL MYELOMA
     Route: 065
     Dates: start: 20131115, end: 20131115
  3. SAR650984 [Suspect]
     Route: 065
     Dates: start: 20131202, end: 20131202
  4. DEXAMETHASONE [Suspect]
     Indication: PLASMA CELL MYELOMA
     Route: 048
     Dates: start: 20131115
  5. DEXAMETHASONE [Suspect]
     Route: 048
     Dates: start: 20131202

REACTIONS (1)
  - Plasmacytoma [Not Recovered/Not Resolved]
